FAERS Safety Report 16198185 (Version 1)
Quarter: 2019Q2

REPORT INFORMATION
  Report Type: Spontaneous
  Country: US (occurrence: US)
  Receive Date: 20190312
  Receipt Date: 20190312
  Transmission Date: 20190711
  Serious: No
  Sender: FDA-Public Use
  Company Number: None

PATIENT
  Age: 67 Year
  Sex: Female
  Weight: 76.2 kg

DRUGS (4)
  1. FORTEO [Suspect]
     Active Substance: TERIPARATIDE
     Indication: RHEUMATOID ARTHRITIS
     Route: 058
     Dates: start: 201903
  2. KEVZARA [Concomitant]
     Active Substance: SARILUMAB
  3. FORTEO [Suspect]
     Active Substance: TERIPARATIDE
     Indication: OSTEOPOROSIS
     Route: 058
     Dates: start: 201903
  4. FORTEO [Suspect]
     Active Substance: TERIPARATIDE
     Indication: CONNECTIVE TISSUE DISORDER
     Route: 058
     Dates: start: 201903

REACTIONS (2)
  - Peripheral swelling [None]
  - Joint swelling [None]
